FAERS Safety Report 6779125-1 (Version None)
Quarter: 2010Q2

REPORT INFORMATION
  Report Type: 
  Country: None (occurrence: None)
  Receive Date: 20100618
  Receipt Date: 20100608
  Transmission Date: 20101027
  Serious: Yes (Other)
  Sender: FDA-Public Use
  Company Number: US-PFIZER INC-2010073441

PATIENT
  Sex: Female
  Weight: 86.621 kg

DRUGS (2)
  1. ZOLOFT [Suspect]
     Indication: SCIATICA
     Dosage: UNK
     Dates: start: 19991201
  2. NORTRIPTYLINE [Suspect]
     Indication: SCIATICA
     Dosage: UNK
     Dates: start: 19991001

REACTIONS (8)
  - ABASIA [None]
  - DIZZINESS [None]
  - DRUG INEFFECTIVE FOR UNAPPROVED INDICATION [None]
  - INFLUENZA LIKE ILLNESS [None]
  - MALAISE [None]
  - NAUSEA [None]
  - PARKINSON'S DISEASE [None]
  - SCIATICA [None]
